FAERS Safety Report 5590249-7 (Version None)
Quarter: 2008Q1

REPORT INFORMATION
  Report Type: 
  Country: None (occurrence: None)
  Receive Date: 20080114
  Receipt Date: 20080110
  Transmission Date: 20080703
  Serious: Yes (Life-Threatening)
  Sender: FDA-Public Use
  Company Number: ID-ASTRAZENECA-2006AP03029

PATIENT
  Age: 25257 Day
  Sex: Male

DRUGS (5)
  1. IRESSA [Suspect]
     Indication: NON-SMALL CELL LUNG CANCER
     Route: 048
     Dates: start: 20060626, end: 20060701
  2. PARACETAMOL [Concomitant]
     Indication: CANCER PAIN
     Route: 048
     Dates: start: 20060615
  3. CODEINE [Concomitant]
     Indication: CANCER PAIN
     Route: 048
     Dates: start: 20060615
  4. CEFOTAXIME [Concomitant]
     Indication: INFECTION
     Route: 042
     Dates: start: 20060620
  5. ACTRAPID HM [Concomitant]
     Indication: DIABETES MELLITUS
     Route: 058
     Dates: start: 20060621

REACTIONS (1)
  - GASTROINTESTINAL HAEMORRHAGE [None]
